FAERS Safety Report 4489863-1 (Version None)
Quarter: 2004Q4

REPORT INFORMATION
  Report Type: 
  Country: None (occurrence: None)
  Receive Date: 20041101
  Receipt Date: 20040830
  Transmission Date: 20050328
  Serious: Yes (Hospitalization, Other)
  Sender: FDA-Public Use
  Company Number: PHHO2004US12160

PATIENT
  Age: 48 Year
  Sex: Male
  Weight: 78 kg

DRUGS (3)
  1. FTY720 VS MYCOPHENOLATE MOFETIL [Suspect]
     Indication: RENAL TRANSPLANT
     Dosage: CODE NOT BROKEN
     Route: 048
     Dates: start: 20040618
  2. NEORAL [Suspect]
     Indication: RENAL TRANSPLANT
     Dosage: 100 MG / DAY
     Route: 048
     Dates: start: 20040619
  3. NEORAL [Suspect]
     Dosage: 500 MG / DAY
     Route: 048

REACTIONS (5)
  - BLOOD CREATININE INCREASED [None]
  - CHRONIC OBSTRUCTIVE AIRWAYS DISEASE [None]
  - KIDNEY TRANSPLANT REJECTION [None]
  - LUNG HYPERINFLATION [None]
  - RENAL ARTERY STENOSIS [None]
